FAERS Safety Report 11091552 (Version 1)
Quarter: 2015Q2

REPORT INFORMATION
  Report Type: Spontaneous
  Country: US (occurrence: None)
  Receive Date: 20150504
  Receipt Date: 20150504
  Transmission Date: 20150821
  Serious: No
  Sender: FDA-Public Use
  Company Number: None

PATIENT
  Age: 60 Year
  Sex: Female
  Weight: 44.45 kg

DRUGS (3)
  1. LEVOXYL [Suspect]
     Active Substance: LEVOTHYROXINE SODIUM
     Indication: HYPOTHYROIDISM
     Route: 048
     Dates: start: 20140207
  2. LEVOXYL [Suspect]
     Active Substance: LEVOTHYROXINE SODIUM
     Indication: AUTOIMMUNE THYROIDITIS
     Route: 048
     Dates: start: 20140207
  3. ZOLPIDEM [Concomitant]
     Active Substance: ZOLPIDEM\ZOLPIDEM TARTRATE

REACTIONS (41)
  - Hypersensitivity [None]
  - Skin tightness [None]
  - Dermatitis [None]
  - Abnormal faeces [None]
  - Erythema [None]
  - Balance disorder [None]
  - Hunger [None]
  - Joint stiffness [None]
  - Dry skin [None]
  - Fatigue [None]
  - Impaired driving ability [None]
  - Product quality issue [None]
  - Product substitution issue [None]
  - Tremor [None]
  - Constipation [None]
  - Skin disorder [None]
  - Skin burning sensation [None]
  - Head discomfort [None]
  - Night sweats [None]
  - Loss of libido [None]
  - Musculoskeletal disorder [None]
  - Pruritus [None]
  - Gait disturbance [None]
  - Vision blurred [None]
  - Weight decreased [None]
  - Muscle spasms [None]
  - Nail bed disorder [None]
  - Headache [None]
  - Depression [None]
  - Malaise [None]
  - Vaginal infection [None]
  - Hyperaesthesia [None]
  - Alopecia [None]
  - Musculoskeletal stiffness [None]
  - Pyrexia [None]
  - Drug administration error [None]
  - Pain [None]
  - Muscle tightness [None]
  - Feeling jittery [None]
  - Ear pain [None]
  - Dysuria [None]

NARRATIVE: CASE EVENT DATE: 20140830
